FAERS Safety Report 14472495 (Version 1)
Quarter: 2018Q1

REPORT INFORMATION
  Report Type: Spontaneous
  Country: US (occurrence: US)
  Receive Date: 20180201
  Receipt Date: 20180201
  Transmission Date: 20180509
  Serious: No
  Sender: FDA-Public Use
  Company Number: US-TEVA-2018-US-845173

PATIENT
  Age: 13 Year
  Sex: Male

DRUGS (1)
  1. OMEGA-3-ACID ETHYL ESTERS CAPSULES, USP ONE GRAM CAPSULE [Suspect]
     Active Substance: OMEGA-3-ACID ETHYL ESTERS
     Indication: SUPPLEMENTATION THERAPY
     Route: 065

REACTIONS (2)
  - Erythema [Unknown]
  - Rash papular [Unknown]
